FAERS Safety Report 6825403-7 (Version None)
Quarter: 2010Q3

REPORT INFORMATION
  Report Type: 
  Country: None (occurrence: None)
  Receive Date: 20100708
  Receipt Date: 20070122
  Transmission Date: 20110219
  Serious: No
  Sender: FDA-Public Use
  Company Number: US-PFIZER INC-2006143245

PATIENT
  Sex: Female

DRUGS (3)
  1. CHANTIX [Suspect]
  2. IBANDRONATE SODIUM [Concomitant]
  3. SYNTHROID [Concomitant]

REACTIONS (4)
  - AGITATION [None]
  - ANGER [None]
  - ASTHENIA [None]
  - HEADACHE [None]
